FAERS Safety Report 11284999 (Version 1)
Quarter: 2015Q3

REPORT INFORMATION
  Report Type: Spontaneous
  Country: JP (occurrence: JP)
  Receive Date: 20150720
  Receipt Date: 20150720
  Transmission Date: 20151125
  Serious: Yes (Hospitalization, Other)
  Sender: FDA-Public Use
  Company Number: JP-PFIZER INC-2015194358

PATIENT
  Age: 44 Year
  Sex: Male
  Weight: 93.6 kg

DRUGS (8)
  1. DEPAS [Suspect]
     Active Substance: ETIZOLAM
     Dosage: 0.5 MG, 3X/DAY
     Route: 048
     Dates: start: 201306, end: 201503
  2. DEPAS [Suspect]
     Active Substance: ETIZOLAM
     Dosage: 1.0 MG, 3X/DAY
     Route: 048
     Dates: start: 201503, end: 20150602
  3. AMOXAN [Concomitant]
     Active Substance: AMOXAPINE
  4. LEXAPRO [Suspect]
     Active Substance: ESCITALOPRAM OXALATE
     Dosage: 10 MG, 1X/DAY
     Route: 048
     Dates: start: 201306
  5. SOLANAX [Concomitant]
     Active Substance: ALPRAZOLAM
  6. LYRICA [Suspect]
     Active Substance: PREGABALIN
     Dosage: UNK, AS NEEDED
     Route: 048
     Dates: end: 20150602
  7. LIVALO [Suspect]
     Active Substance: PITAVASTATIN CALCIUM
     Dosage: 2 MG, 1X/DAY
     Route: 048
     Dates: start: 201405
  8. ACTOS [Suspect]
     Active Substance: PIOGLITAZONE HYDROCHLORIDE
     Dosage: 15 MG, 1X/DAY
     Route: 048
     Dates: start: 201312

REACTIONS (6)
  - Alanine aminotransferase increased [Recovered/Resolved]
  - Blood creatine phosphokinase increased [Recovered/Resolved]
  - Blood lactate dehydrogenase increased [Recovered/Resolved]
  - Headache [Unknown]
  - Chest pain [Unknown]
  - Aspartate aminotransferase increased [Recovered/Resolved]

NARRATIVE: CASE EVENT DATE: 20150602
